FAERS Safety Report 6774398-3 (Version None)
Quarter: 2010Q2

REPORT INFORMATION
  Report Type: 
  Country: None (occurrence: None)
  Receive Date: 20100617
  Receipt Date: 20100609
  Transmission Date: 20101027
  Serious: Yes (Hospitalization, Other)
  Sender: FDA-Public Use
  Company Number: US-JNJFOC-20100603493

PATIENT
  Sex: Female
  Weight: 104.33 kg

DRUGS (8)
  1. TOPAMAX [Suspect]
     Indication: MIGRAINE PROPHYLAXIS
     Route: 048
  2. DARVOCET [Suspect]
     Indication: MIGRAINE
     Dosage: 100/650MG
     Route: 048
  3. ATENOLOL [Concomitant]
     Indication: HYPERTENSION
     Route: 048
  4. NORVASC [Concomitant]
     Indication: HYPERTENSION
     Route: 048
  5. ALLOPURINOL [Concomitant]
     Indication: HYPERTENSION
     Route: 048
  6. NORTRIPTYLINE HCL [Concomitant]
     Indication: ANXIETY
     Route: 048
  7. MIRTAZAPINE [Concomitant]
     Indication: ANXIETY
     Route: 048
  8. ASPIRIN [Concomitant]
     Indication: HYPERTENSION
     Route: 048

REACTIONS (4)
  - ABASIA [None]
  - AMNESIA [None]
  - GOUT [None]
  - LOSS OF CONSCIOUSNESS [None]
